FAERS Safety Report 5006832-3 (Version None)
Quarter: 2006Q2

REPORT INFORMATION
  Report Type: 
  Country: None (occurrence: None)
  Receive Date: 20060516
  Receipt Date: 20060503
  Transmission Date: 20061013
  Serious: Yes (Other)
  Sender: FDA-Public Use
  Company Number: 2006BH009226

PATIENT
  Age: 44 Year
  Sex: Female

DRUGS (12)
  1. GENTAMICIN [Suspect]
     Dosage: 80 MG; IV
     Route: 042
  2. ROFECOXIB [Concomitant]
  3. ;EVOTHYROXINE [Concomitant]
  4. PAROXETINE [Concomitant]
  5. ACETYLSALICYLIC ACID SRT [Concomitant]
  6. FENTANYL [Concomitant]
  7. ROCURONIUM [Concomitant]
  8. MORPHINE [Concomitant]
  9. EPHEDRINE [Concomitant]
  10. NEOSTIGMINE [Concomitant]
  11. GLYCOPYRROLATE [Concomitant]
  12. METOPROLOL [Concomitant]

REACTIONS (7)
  - COORDINATION ABNORMAL [None]
  - DEAFNESS [None]
  - DIZZINESS [None]
  - ELECTROCARDIOGRAM T WAVE INVERSION [None]
  - NAUSEA [None]
  - OSCILLOPSIA [None]
  - TINNITUS [None]
